FAERS Safety Report 7350436-4 (Version None)
Quarter: 2011Q1

REPORT INFORMATION
  Report Type: 
  Country: None (occurrence: None)
  Receive Date: 20110314
  Receipt Date: 20110301
  Transmission Date: 20110831
  Serious: Yes (Other)
  Sender: FDA-Public Use
  Company Number: DE-JNJFOC-20110300484

PATIENT
  Sex: Male

DRUGS (5)
  1. PARACETAMOL [Suspect]
     Indication: SUICIDE ATTEMPT
     Route: 048
  2. IBUPROFEN [Suspect]
     Indication: SUICIDE ATTEMPT
     Route: 048
  3. IMODIUM 2 [Suspect]
     Indication: SUICIDE ATTEMPT
     Route: 048
  4. DOLORMIN [Suspect]
     Indication: SUICIDE ATTEMPT
     Route: 048
  5. PENICILLIN [Suspect]
     Indication: SUICIDE ATTEMPT
     Route: 048

REACTIONS (6)
  - SYNCOPE [None]
  - TACHYCARDIA [None]
  - SUICIDE ATTEMPT [None]
  - VOMITING [None]
  - MULTIPLE DRUG OVERDOSE INTENTIONAL [None]
  - DIZZINESS [None]
